FAERS Safety Report 7824598-6 (Version None)
Quarter: 2011Q4

REPORT INFORMATION
  Report Type: 
  Country: None (occurrence: None)
  Receive Date: 20111019
  Receipt Date: 20111007
  Transmission Date: 20120403
  Serious: No
  Sender: FDA-Public Use
  Company Number: US-ELI_LILLY_AND_COMPANY-US201110002531

PATIENT
  Sex: Female

DRUGS (2)
  1. CYMBALTA [Suspect]
     Indication: ANXIETY
     Dosage: 60 MG, QD
     Dates: start: 20070101
  2. CYMBALTA [Suspect]
     Dosage: 30 MG, QD
     Dates: start: 20111006

REACTIONS (1)
  - HEPATIC ENZYME INCREASED [None]
